FAERS Safety Report 16767561 (Version 1)
Quarter: 2019Q3

REPORT INFORMATION
  Report Type: Spontaneous
  Country: FR (occurrence: FR)
  Receive Date: 20190903
  Receipt Date: 20190903
  Transmission Date: 20191005
  Serious: Yes (Hospitalization)
  Sender: FDA-Public Use
  Company Number: FR-MYLANLABS-2019M1081550

PATIENT
  Age: 80 Year
  Sex: Female
  Weight: 54 kg

DRUGS (9)
  1. METHOTREXATE. [Suspect]
     Active Substance: METHOTREXATE
     Indication: PSORIASIS
     Dosage: 10 MILLIGRAM, QW
     Route: 048
     Dates: start: 20161216
  2. METHOTREXATE. [Concomitant]
     Active Substance: METHOTREXATE
     Indication: PSORIASIS
     Dosage: 15 MILLIGRAM, QW
     Route: 048
     Dates: start: 2011, end: 20161216
  3. SPECIAFOLDINE [Concomitant]
     Active Substance: FOLIC ACID
     Dosage: 10 MILLIGRAM, EVERY 7 DAY
     Route: 048
     Dates: start: 2011
  4. SORIATANE [Concomitant]
     Active Substance: ACITRETIN
     Dosage: NR
     Route: 048
     Dates: start: 20180610
  5. DAIVOBET [Concomitant]
     Active Substance: BETAMETHASONE DIPROPIONATE\CALCIPOTRIENE
     Dosage: 50 MICROGRAMMES/0,5 MG/G
     Route: 003
     Dates: start: 20160610
  6. CLOBEX                             /00012002/ [Concomitant]
     Active Substance: CLOXACILLIN SODIUM
     Dosage: NR
     Route: 003
  7. SOOLANTRA [Concomitant]
     Active Substance: IVERMECTIN
     Dosage: NR
     Route: 003
     Dates: start: 20161216
  8. DIPROSONE [Concomitant]
     Active Substance: BETAMETHASONE DIPROPIONATE
     Dosage: NR
     Route: 003
     Dates: start: 20160610
  9. ROZEX (METRONIDAZOLE) [Concomitant]
     Active Substance: METRONIDAZOLE
     Dosage: NR
     Route: 003
     Dates: start: 20160610

REACTIONS (1)
  - Transient ischaemic attack [Recovered/Resolved]

NARRATIVE: CASE EVENT DATE: 20181220
